FAERS Safety Report 4305603-0 (Version None)
Quarter: 2004Q1

REPORT INFORMATION
  Report Type: 
  Country: None (occurrence: None)
  Receive Date: 20040226
  Receipt Date: 20031210
  Transmission Date: 20041129
  Serious: No
  Sender: FDA-Public Use
  Company Number: US-BRISTOL-MYERS SQUIBB COMPANY-12454849

PATIENT
  Sex: Male

DRUGS (1)
  1. ABILIFY [Suspect]
     Route: 048

REACTIONS (1)
  - DYSTONIA [None]
